FAERS Safety Report 11353639 (Version 1)
Quarter: 2015Q3

REPORT INFORMATION
  Report Type: Spontaneous
  Country: US (occurrence: US)
  Receive Date: 20150807
  Receipt Date: 20150807
  Transmission Date: 20151125
  Serious: No
  Sender: FDA-Public Use
  Company Number: US-JNJFOC-20150507702

PATIENT
  Age: 57 Year
  Sex: Female
  Weight: 61.69 kg

DRUGS (4)
  1. CALCIUM [Concomitant]
     Active Substance: CALCIUM
     Indication: PRODUCT USED FOR UNKNOWN INDICATION
     Dosage: DAILY, YEARS.
     Route: 065
  2. WOMENS ROGAINE UNSCENTED [Suspect]
     Active Substance: MINOXIDIL
     Route: 061
  3. WOMENS ROGAINE UNSCENTED [Suspect]
     Active Substance: MINOXIDIL
     Indication: ALOPECIA
     Dosage: DIRECTLY ONTO SCALP 1-2 X DAILY
     Route: 061
     Dates: end: 20150511
  4. VITAMINS [Concomitant]
     Active Substance: VITAMINS
     Indication: PRODUCT USED FOR UNKNOWN INDICATION
     Dosage: DAILY, YEARS
     Route: 065

REACTIONS (4)
  - Product quality issue [Unknown]
  - Wrong technique in product usage process [Unknown]
  - Hair colour changes [Not Recovered/Not Resolved]
  - Off label use [Unknown]
